FAERS Safety Report 24026410 (Version 1)
Quarter: 2024Q2

REPORT INFORMATION
  Report Type: Spontaneous
  Country: CN (occurrence: CN)
  Receive Date: 20240628
  Receipt Date: 20240628
  Transmission Date: 20240716
  Serious: No
  Sender: FDA-Public Use
  Company Number: CN-ROCHE-3528294

PATIENT
  Age: 65 Year
  Sex: Male
  Weight: 100.0 kg

DRUGS (1)
  1. ALECENSA [Suspect]
     Active Substance: ALECTINIB HYDROCHLORIDE
     Indication: Lung adenocarcinoma
     Route: 048
     Dates: start: 20240103, end: 20240131

REACTIONS (6)
  - Blood pressure decreased [Recovering/Resolving]
  - Renal injury [Recovering/Resolving]
  - Dyspnoea [Recovering/Resolving]
  - Oedema [Not Recovered/Not Resolved]
  - Asthenia [Recovering/Resolving]
  - Blood pressure increased [Unknown]

NARRATIVE: CASE EVENT DATE: 20240106
